FAERS Safety Report 6098511-9 (Version None)
Quarter: 2009Q1

REPORT INFORMATION
  Report Type: 
  Country: None (occurrence: None)
  Receive Date: 20090302
  Receipt Date: 20090219
  Transmission Date: 20090719
  Serious: Yes (Other)
  Sender: FDA-Public Use
  Company Number: CA-JNJFOC-20081000061

PATIENT
  Age: 34 Year
  Sex: Female
  Weight: 91.5 kg

DRUGS (6)
  1. REMICADE [Suspect]
     Dosage: WEIGHT = 93 KG
     Route: 042
  2. REMICADE [Suspect]
     Route: 042
  3. REMICADE [Suspect]
     Dosage: WEIGHT = 91.5 KG
     Route: 042
  4. REMICADE [Suspect]
     Indication: ANKYLOSING SPONDYLITIS
     Dosage: WEIGHT = 73 KG
     Route: 042
  5. TYLENOL [Concomitant]
     Indication: PREMEDICATION
  6. BENADRYL [Concomitant]
     Indication: PREMEDICATION
     Route: 042

REACTIONS (1)
  - WEIGHT INCREASED [None]
